FAERS Safety Report 7730278-8 (Version None)
Quarter: 2011Q3

REPORT INFORMATION
  Report Type: 
  Country: None (occurrence: None)
  Receive Date: 20110906
  Receipt Date: 20110825
  Transmission Date: 20111222
  Serious: Yes (Hospitalization, Congenital Anomaly)
  Sender: FDA-Public Use
  Company Number: DE-TEVA-298008GER

PATIENT
  Age: 0 Year
  Sex: Male
  Weight: 2.14 kg

DRUGS (2)
  1. CITALOPRAM [Suspect]
     Dosage: 10 MILLIGRAM;
     Route: 064
     Dates: start: 20100304, end: 20101014
  2. FOLIO [Concomitant]
     Route: 064
     Dates: start: 20100304

REACTIONS (1)
  - CHYLOTHORAX [None]
